FAERS Safety Report 8123205-5 (Version None)
Quarter: 2012Q1

REPORT INFORMATION
  Report Type: 
  Country: None (occurrence: None)
  Receive Date: 20120208
  Receipt Date: 20120201
  Transmission Date: 20120608
  Serious: Yes (Other)
  Sender: FDA-Public Use
  Company Number: PHHY2012IT008523

PATIENT
  Age: 48 Year
  Sex: Female

DRUGS (3)
  1. PACLITAXEL [Suspect]
     Dosage: 90 MG/M2, UNK
  2. STEROIDS NOS [Suspect]
  3. BEVACIZUMAB [Suspect]
     Dosage: 10 MG/KG, UNK

REACTIONS (5)
  - RHINORRHOEA [None]
  - NASAL SEPTUM PERFORATION [None]
  - NASAL CONGESTION [None]
  - NASAL DISCOMFORT [None]
  - EPISTAXIS [None]
